FAERS Safety Report 4751516-X (Version None)
Quarter: 2005Q3

REPORT INFORMATION
  Report Type: 
  Country: None (occurrence: None)
  Receive Date: 20050822
  Receipt Date: 20050809
  Transmission Date: 20060218
  Serious: Yes (Hospitalization)
  Sender: FDA-Public Use
  Company Number: 2004091521

PATIENT
  Sex: Male

DRUGS (1)
  1. XALATAN [Suspect]
     Indication: ILL-DEFINED DISORDER
     Dosage: OPHTHALMIC
     Route: 047

REACTIONS (5)
  - ANGINA PECTORIS [None]
  - CARDIAC MURMUR [None]
  - CHEST PAIN [None]
  - DYSPNOEA [None]
  - VENTRICULAR HYPERTROPHY [None]
